FAERS Safety Report 4906061-5 (Version None)
Quarter: 2006Q1

REPORT INFORMATION
  Report Type: 
  Country: None (occurrence: None)
  Receive Date: 20060207
  Receipt Date: 20060126
  Transmission Date: 20060701
  Serious: Yes (Hospitalization, Other)
  Sender: FDA-Public Use
  Company Number: GXKR2006FR00483

PATIENT
  Sex: Female

DRUGS (2)
  1. SPIRONOLACTONE [Suspect]
     Indication: HYPERTENSION
     Dosage: 0.5 TABLET, ORAL
     Route: 048
     Dates: end: 20050907
  2. ALTIZIDE/SPIRONOLACTONE (ALTIZIDE, SPIRONOLACTONE) 15/25MG [Suspect]
     Indication: HYPERTENSION
     Dosage: 0.5 TABLET, ORAL
     Route: 048
     Dates: start: 20010409

REACTIONS (10)
  - BLOOD IMMUNOGLOBULIN E INCREASED [None]
  - CHOLESTASIS [None]
  - ECZEMA [None]
  - INFECTION [None]
  - INSOMNIA [None]
  - PRURITUS [None]
  - PUSTULAR PSORIASIS [None]
  - SEZARY CELLS INCREASED [None]
  - TOXIC SKIN ERUPTION [None]
  - WOUND SECRETION [None]
